FAERS Safety Report 15930014 (Version 1)
Quarter: 2019Q1

REPORT INFORMATION
  Report Type: Spontaneous
  Country: NL (occurrence: NL)
  Receive Date: 20190206
  Receipt Date: 20190206
  Transmission Date: 20190417
  Serious: Yes (Other)
  Sender: FDA-Public Use
  Company Number: NL-TEVA-2019-NL-1007912

PATIENT
  Age: 53 Year
  Sex: Male
  Weight: 80 kg

DRUGS (6)
  1. DIAZEPAM. [Concomitant]
     Active Substance: DIAZEPAM
     Dosage: 6 TIMES DAILY 1 TABLET OF 5
  2. VITAMINE D [Concomitant]
     Active Substance: CHOLECALCIFEROL
  3. MULTIVITAMINE [Concomitant]
  4. IJZER [Concomitant]
  5. VITAMINE C [Concomitant]
     Active Substance: ASCORBIC ACID
  6. OXYCODON TABLET MET GEREGULEERDE AFGIFTE, 80 MG (MILLIGRAM) [Suspect]
     Active Substance: OXYCODONE
     Indication: BACK PAIN
     Dosage: 2MAAL DAY 1 TABLET
     Dates: start: 20170101

REACTIONS (8)
  - Depressed mood [Recovering/Resolving]
  - Paranoia [Recovering/Resolving]
  - Withdrawal syndrome [Recovering/Resolving]
  - Insomnia [Recovering/Resolving]
  - Pruritus [Recovering/Resolving]
  - Hypoaesthesia [Recovering/Resolving]
  - Suicidal ideation [Recovering/Resolving]
  - Aggression [Recovering/Resolving]

NARRATIVE: CASE EVENT DATE: 20170605
